FAERS Safety Report 8789581 (Version 1)
Quarter: 2012Q4

REPORT INFORMATION
  Report Type: Spontaneous
  Country: DK (occurrence: None)
  Receive Date: 20120906
  Receipt Date: 20120906
  Transmission Date: 20130627
  Serious: Yes (Disabling)
  Sender: FDA-Public Use
  Company Number: 2012MA010595

PATIENT
  Age: 32 Year
  Sex: Male

DRUGS (2)
  1. MIRTAZAPINE [Suspect]
     Indication: ANXIETY
     Route: 048
  2. DIAZEPAM [Concomitant]

REACTIONS (4)
  - Emotional distress [None]
  - Violence-related symptom [None]
  - Insomnia [None]
  - Suicidal ideation [None]
